FAERS Safety Report 24719752 (Version 4)
Quarter: 2025Q1

REPORT INFORMATION
  Report Type: Spontaneous
  Country: US (occurrence: US)
  Receive Date: 20241211
  Receipt Date: 20250127
  Transmission Date: 20250409
  Serious: No
  Sender: ROCHE
  Company Number: US-ROCHE-10000150088

PATIENT
  Age: 67 Year
  Sex: Male
  Weight: 75.2 kg

DRUGS (2)
  1. ALECENSA [Suspect]
     Active Substance: ALECTINIB HYDROCHLORIDE
     Indication: Bronchial carcinoma
     Route: 048
     Dates: start: 20241028
  2. LORLATINIB [Concomitant]
     Active Substance: LORLATINIB

REACTIONS (5)
  - Peripheral swelling [Unknown]
  - Fatigue [Unknown]
  - Hypotension [Unknown]
  - Heart rate decreased [Unknown]
  - Oedema [Recovered/Resolved]

NARRATIVE: CASE EVENT DATE: 20241129
